FAERS Safety Report 20786392 (Version 1)
Quarter: 2022Q2

REPORT INFORMATION
  Report Type: Spontaneous
  Country: US (occurrence: None)
  Receive Date: 20220504
  Receipt Date: 20220504
  Transmission Date: 20220721
  Serious: No
  Sender: FDA-Public Use
  Company Number: US-ROCHE-2922738

PATIENT
  Age: 32 Year
  Sex: Female
  Weight: 77.180 kg

DRUGS (4)
  1. OCREVUS [Suspect]
     Active Substance: OCRELIZUMAB
     Indication: Relapsing-remitting multiple sclerosis
     Route: 042
     Dates: start: 202011
  2. METOPROLOL [Concomitant]
     Active Substance: METOPROLOL
  3. CELEBREX [Concomitant]
     Active Substance: CELECOXIB
  4. AMANTADINE [Concomitant]
     Active Substance: AMANTADINE

REACTIONS (2)
  - Swelling [Not Recovered/Not Resolved]
  - Pain [Not Recovered/Not Resolved]

NARRATIVE: CASE EVENT DATE: 20210520
